FAERS Safety Report 15439647 (Version 1)
Quarter: 2018Q3

REPORT INFORMATION
  Report Type: Spontaneous
  Country: US (occurrence: US)
  Receive Date: 20180925
  Receipt Date: 20180925
  Transmission Date: 20181010
  Serious: Yes (Disabling)
  Sender: FDA-Public Use
  Company Number: None

PATIENT
  Age: 60 Year
  Sex: Female
  Weight: 139.5 kg

DRUGS (10)
  1. TRESIBA [Suspect]
     Active Substance: INSULIN DEGLUDEC
     Indication: DIABETES MELLITUS
     Route: 058
  2. METOPROLOL. [Concomitant]
     Active Substance: METOPROLOL
  3. VITAMIN B [Concomitant]
     Active Substance: VITAMIN B
  4. BIPAP [Concomitant]
     Active Substance: DEVICE
  5. ASPIRIN. [Concomitant]
     Active Substance: ASPIRIN
  6. IBUPROFEN. [Concomitant]
     Active Substance: IBUPROFEN
  7. ZOLOFT [Concomitant]
     Active Substance: SERTRALINE HYDROCHLORIDE
  8. LANTUS [Concomitant]
     Active Substance: INSULIN GLARGINE
  9. VITAMIN D3 [Concomitant]
     Active Substance: CHOLECALCIFEROL
  10. OZEMPIC [Concomitant]
     Active Substance: SEMAGLUTIDE

REACTIONS (7)
  - Dry skin [None]
  - Dyspnoea [None]
  - Cognitive disorder [None]
  - Pruritus [None]
  - Lethargy [None]
  - Personality change [None]
  - Confusional state [None]

NARRATIVE: CASE EVENT DATE: 20180914
